FAERS Safety Report 6243879-3 (Version None)
Quarter: 2009Q2

REPORT INFORMATION
  Report Type: 
  Country: None (occurrence: None)
  Receive Date: 20090624
  Receipt Date: 20090616
  Transmission Date: 20091009
  Serious: Yes (Hospitalization, Disabling, Other)
  Sender: FDA-Public Use
  Company Number: US-MERCK-0606USA05666

PATIENT
  Age: 83 Year
  Sex: Female
  Weight: 77 kg

DRUGS (16)
  1. FOSAMAX [Suspect]
     Indication: OSTEOPOROSIS
     Route: 048
     Dates: start: 20030101, end: 20070301
  2. FOSAMAX [Suspect]
     Route: 048
     Dates: start: 20040402, end: 20060620
  3. PREMARIN [Concomitant]
     Route: 065
  4. OS-CAL + D [Concomitant]
     Route: 065
  5. SOTALOL HYDROCHLORIDE [Concomitant]
     Route: 065
  6. DIOVAN [Concomitant]
     Route: 065
  7. HYDROCHLOROTHIAZIDE [Concomitant]
     Route: 065
  8. LASIX [Concomitant]
     Route: 065
     Dates: end: 20050804
  9. POTASSIUM (UNSPECIFIED) [Concomitant]
     Route: 065
  10. DETROL [Concomitant]
     Route: 065
  11. PAXIL [Concomitant]
     Route: 065
  12. COLACE [Concomitant]
     Route: 065
  13. LOPRESSOR [Concomitant]
     Route: 065
  14. PROTONIX [Concomitant]
     Route: 065
  15. COUMADIN [Concomitant]
     Route: 065
  16. COUMADIN [Concomitant]
     Route: 065

REACTIONS (28)
  - ABSCESS [None]
  - ACOUSTIC NEUROMA [None]
  - AMNESIA [None]
  - ARTERIOSCLEROSIS CORONARY ARTERY [None]
  - ASTHMA [None]
  - ATRIAL FIBRILLATION [None]
  - CEREBROVASCULAR ACCIDENT [None]
  - CERUMEN IMPACTION [None]
  - CHRONIC OBSTRUCTIVE PULMONARY DISEASE [None]
  - CYSTOCELE [None]
  - DIABETES MELLITUS [None]
  - FALL [None]
  - HAEMATOMA [None]
  - IDIOPATHIC PULMONARY FIBROSIS [None]
  - INTERSTITIAL LUNG DISEASE [None]
  - JOINT SPRAIN [None]
  - LIPOMA [None]
  - MEMORY IMPAIRMENT [None]
  - MYOCARDIAL INFARCTION [None]
  - ORAL TORUS [None]
  - OSTEONECROSIS [None]
  - OSTEOPENIA [None]
  - PELVIC PROLAPSE [None]
  - RECTAL PROLAPSE [None]
  - RHINITIS ALLERGIC [None]
  - URINARY INCONTINENCE [None]
  - VAGINAL PROLAPSE [None]
  - VISUAL IMPAIRMENT [None]
